FAERS Safety Report 7479566-3 (Version None)
Quarter: 2011Q2

REPORT INFORMATION
  Report Type: 
  Country: None (occurrence: None)
  Receive Date: 20110513
  Receipt Date: 20110502
  Transmission Date: 20111010
  Serious: Yes (Hospitalization)
  Sender: FDA-Public Use
  Company Number: US-CELGENEUS-163-21880-11050459

PATIENT
  Sex: Male

DRUGS (15)
  1. CLONIDINE HCL [Concomitant]
     Dosage: .3 MILLIGRAM
     Route: 048
  2. TAMSULOSIN HCL [Concomitant]
     Dosage: .4 MILLIGRAM
     Route: 048
  3. FUROSEMIDE [Concomitant]
     Dosage: 40 MILLIGRAM
     Route: 048
     Dates: start: 20090917
  4. REVLIMID [Suspect]
     Dosage: 15 MILLIGRAM
     Route: 048
     Dates: start: 20100209
  5. LOVENOX [Concomitant]
     Dosage: 30MG/0.3ML
     Route: 058
     Dates: start: 20100317
  6. REVLIMID [Suspect]
     Dosage: 25 MILLIGRAM
     Route: 048
     Dates: start: 20091026
  7. LABETALOL HCL [Concomitant]
     Dosage: 200 MILLIGRAM
     Route: 048
  8. DOXAZOSIN MESYLATE [Concomitant]
     Dosage: 40 MILLIGRAM
     Route: 048
  9. OYSTER CALCIUM [Concomitant]
     Dosage: 3 DOSAGE FORMS
     Route: 048
  10. LORAZEPAM [Concomitant]
     Dosage: 2 MILLIGRAM
     Route: 048
  11. POTASSIUM CHLORIDE [Concomitant]
     Dosage: 20 MILLIEQUIVALENTS
     Route: 048
     Dates: start: 20091005
  12. FAMOTIDINE [Concomitant]
     Dosage: 20 MILLIGRAM
     Route: 048
  13. LACTULOSE [Concomitant]
     Dosage: 10GM/15ML
     Route: 065
     Dates: start: 20091207
  14. REVLIMID [Suspect]
     Indication: MULTIPLE MYELOMA
     Dosage: 25 MILLIGRAM
     Route: 048
     Dates: start: 20090101
  15. DEXAMETHASONE [Concomitant]
     Dosage: 4 MILLIGRAM
     Route: 048

REACTIONS (1)
  - LIPOMA [None]
